FAERS Safety Report 5763951-1 (Version None)
Quarter: 2008Q2

REPORT INFORMATION
  Report Type: 
  Country: None (occurrence: None)
  Receive Date: 20080606
  Receipt Date: 20080606
  Transmission Date: 20081010
  Serious: No
  Sender: FDA-Public Use
  Company Number: None

PATIENT
  Sex: Female
  Weight: 80.7403 kg

DRUGS (1)
  1. REMICADE [Suspect]
     Dosage: IV DRIP
     Route: 041

REACTIONS (1)
  - SKIN PAPILLOMA [None]
